FAERS Safety Report 25885697 (Version 1)
Quarter: 2025Q4

REPORT INFORMATION
  Report Type: Spontaneous
  Country: CA (occurrence: CA)
  Receive Date: 20251006
  Receipt Date: 20251006
  Transmission Date: 20260117
  Serious: Yes (Other)
  Sender: PFIZER
  Company Number: CA-PFIZER INC-202500196958

PATIENT
  Age: 61 Year
  Sex: Male
  Weight: 100 kg

DRUGS (1)
  1. HEPARIN SODIUM [Suspect]
     Active Substance: HEPARIN SODIUM
     Indication: Coronary artery disease
     Dosage: 45000 IU

REACTIONS (1)
  - Cerebrovascular accident [Unknown]
